FAERS Safety Report 25168240 (Version 3)
Quarter: 2025Q2

REPORT INFORMATION
  Report Type: Spontaneous
  Country: US (occurrence: US)
  Receive Date: 20250407
  Receipt Date: 20250429
  Transmission Date: 20250716
  Serious: No
  Sender: TRAVERE THERAPEUTICS
  Company Number: US-TRAVERE-2025TVT00294

PATIENT
  Age: 38 Year
  Sex: Female

DRUGS (1)
  1. FILSPARI [Suspect]
     Active Substance: SPARSENTAN
     Indication: IgA nephropathy
     Route: 048
     Dates: start: 20250224, end: 20250304

REACTIONS (5)
  - Renal pain [None]
  - Hypertension [Unknown]
  - Blood pressure abnormal [Unknown]
  - Abdominal distension [None]
  - Abdominal pain [Unknown]
